FAERS Safety Report 6736731-8 (Version None)
Quarter: 2010Q2

REPORT INFORMATION
  Report Type: 
  Country: None (occurrence: None)
  Receive Date: 20100521
  Receipt Date: 20100520
  Transmission Date: 20101027
  Serious: Yes (Death)
  Sender: FDA-Public Use
  Company Number: PHHY2010US32635

PATIENT
  Sex: Female
  Weight: 54.5 kg

DRUGS (2)
  1. EXJADE [Suspect]
     Indication: LYMPHATIC SYSTEM NEOPLASM
     Dosage: 1000MG/DAY
     Route: 048
     Dates: start: 20090228, end: 20100421
  2. EXJADE [Suspect]
     Indication: BLOOD DISORDER

REACTIONS (1)
  - DEATH [None]
